FAERS Safety Report 9819547 (Version 1)
Quarter: 2014Q1

REPORT INFORMATION
  Report Type: Spontaneous
  Country: US (occurrence: None)
  Receive Date: 20140113
  Receipt Date: 20140113
  Transmission Date: 20141002
  Serious: No
  Sender: FDA-Public Use
  Company Number: 2014-00003

PATIENT
  Sex: Male

DRUGS (1)
  1. ZICAM COLD REMEDY RAPIDMELTS [Suspect]

REACTIONS (1)
  - Ageusia [None]
